FAERS Safety Report 16450275 (Version 1)
Quarter: 2019Q2

REPORT INFORMATION
  Report Type: Report from Study
  Country: JP (occurrence: JP)
  Receive Date: 20190619
  Receipt Date: 20190619
  Transmission Date: 20190711
  Serious: Yes (Life-Threatening, Other)
  Sender: FDA-Public Use
  Company Number: JP-TEVA-2019-JP-1041670

PATIENT
  Age: 27 Year
  Sex: Female

DRUGS (1)
  1. GLATIRAMER ACETATE. [Suspect]
     Active Substance: GLATIRAMER ACETATE
     Indication: MULTIPLE SCLEROSIS RELAPSE PROPHYLAXIS
     Dosage: 20 MILLIGRAM/MILLILITERS DAILY;
     Route: 065
     Dates: start: 20190318

REACTIONS (2)
  - Induration [Not Recovered/Not Resolved]
  - Anaphylactic reaction [Recovered/Resolved]

NARRATIVE: CASE EVENT DATE: 20190410
